FAERS Safety Report 6282900-3 (Version None)
Quarter: 2009Q3

REPORT INFORMATION
  Report Type: 
  Country: None (occurrence: None)
  Receive Date: 20090724
  Receipt Date: 20090717
  Transmission Date: 20100115
  Serious: Yes (Hospitalization, Other)
  Sender: FDA-Public Use
  Company Number: ES-AMGEN-UK310464

PATIENT
  Age: 81 Year
  Sex: Female

DRUGS (21)
  1. ARANESP [Suspect]
     Indication: ANAEMIA
     Route: 058
     Dates: start: 20060925
  2. DIGOXIN [Concomitant]
  3. DILTIAZEM [Concomitant]
  4. OMEPRAZOLE [Concomitant]
  5. FOLIC ACID [Concomitant]
  6. VITAMIN B-12 [Concomitant]
  7. ISOSORBIDE MONONITRATE [Concomitant]
     Route: 065
  8. PARACETAMOL [Concomitant]
  9. METAMIZOLE [Concomitant]
  10. ACFOL [Concomitant]
  11. ZOPICLONE [Concomitant]
  12. SEROXAT [Concomitant]
  13. ACETYLSALICYLIC ACID [Concomitant]
  14. ACENOCOUMAROL [Concomitant]
  15. HEPTAMINOL HYDROCHLORIDE [Concomitant]
  16. TRIMETAZIDINE [Concomitant]
  17. TORSEMIDE [Concomitant]
  18. BENADON [Concomitant]
  19. LORAMET [Concomitant]
  20. SIMVASTATIN [Concomitant]
  21. VITAMINS NOS [Concomitant]

REACTIONS (17)
  - ABSCESS [None]
  - ARRHYTHMIA [None]
  - ATRIAL FIBRILLATION [None]
  - BLOOD PRESSURE INCREASED [None]
  - DIZZINESS [None]
  - GAIT DISTURBANCE [None]
  - HAEMOGLOBIN DECREASED [None]
  - HEADACHE [None]
  - HYPERHIDROSIS [None]
  - HYPOTENSION [None]
  - ISCHAEMIC STROKE [None]
  - LOSS OF CONSCIOUSNESS [None]
  - ORAL INFECTION [None]
  - TACHYCARDIA [None]
  - VERTIGO [None]
  - VIRAL INFECTION [None]
  - VOMITING [None]
